FAERS Safety Report 24246540 (Version 1)
Quarter: 2024Q3

REPORT INFORMATION
  Report Type: Spontaneous
  Country: US (occurrence: US)
  Receive Date: 20240825
  Receipt Date: 20240825
  Transmission Date: 20241017
  Serious: No
  Sender: JOHNSON AND JOHNSON
  Company Number: US-JNJFOC-20240850447

PATIENT
  Age: 18 Year
  Sex: Female

DRUGS (44)
  1. SPRAVATO [Suspect]
     Active Substance: ESKETAMINE
     Indication: Product used for unknown indication
     Dates: start: 20240730
  2. CYMBALTA [Concomitant]
     Active Substance: DULOXETINE HYDROCHLORIDE
     Route: 065
     Dates: start: 20230123
  3. GUANFACINE [Concomitant]
     Active Substance: GUANFACINE
     Route: 065
     Dates: start: 20230620
  4. CROMOLYN SODIUM [Concomitant]
     Active Substance: CROMOLYN SODIUM
     Route: 065
     Dates: start: 20230708
  5. ATENOLOL [Concomitant]
     Active Substance: ATENOLOL
     Route: 065
     Dates: start: 20231020
  6. DILTIAZEM HYDROCHLORIDE [Concomitant]
     Active Substance: DILTIAZEM HYDROCHLORIDE
     Route: 065
     Dates: start: 20230728
  7. DULOXETINE HYDROCHLORIDE [Concomitant]
     Active Substance: DULOXETINE HYDROCHLORIDE
     Route: 065
     Dates: start: 20230106
  8. ZAFIRLUKAST [Concomitant]
     Active Substance: ZAFIRLUKAST
     Route: 065
     Dates: start: 20230626
  9. SPRINTEC [Concomitant]
     Active Substance: ETHINYL ESTRADIOL\NORGESTIMATE
     Route: 065
     Dates: start: 20230726
  10. ALBUTEROL SULFATE [Concomitant]
     Active Substance: ALBUTEROL SULFATE
     Route: 065
     Dates: start: 20230626
  11. ADDERALL [Concomitant]
     Active Substance: AMPHETAMINE ASPARTATE\AMPHETAMINE SULFATE\DEXTROAMPHETAMINE SACCHARATE\DEXTROAMPHETAMINE SULFATE
     Route: 065
     Dates: start: 20191001
  12. CELECOXIB [Concomitant]
     Active Substance: CELECOXIB
     Route: 065
     Dates: start: 20230619
  13. DESMOPRESSIN ACETATE [Concomitant]
     Active Substance: DESMOPRESSIN ACETATE
     Route: 065
     Dates: start: 20221021
  14. ATROPINE\DIPHENOXYLATE [Concomitant]
     Active Substance: ATROPINE\DIPHENOXYLATE
     Dosage: 2.5-0.025 MILLIGRAM
     Route: 065
     Dates: start: 20230803
  15. FAMOTIDINE [Concomitant]
     Active Substance: FAMOTIDINE
     Route: 065
  16. FLUOXETINE HYDROCHLORIDE [Concomitant]
     Active Substance: FLUOXETINE HYDROCHLORIDE
     Route: 065
     Dates: start: 20210924
  17. GUANFACINE HYDROCHLORIDE [Concomitant]
     Active Substance: GUANFACINE HYDROCHLORIDE
     Route: 065
     Dates: start: 20230705
  18. HYDROXYZINE HYDROCHLORIDE [Concomitant]
     Active Substance: HYDROXYZINE HYDROCHLORIDE
     Route: 065
     Dates: start: 20231222
  19. LEVOCETIRIZINE DIHYDROCHLORIDE [Concomitant]
     Active Substance: LEVOCETIRIZINE DIHYDROCHLORIDE
     Route: 065
     Dates: start: 20230626
  20. MIDODRINE HYDROCHLORIDE [Concomitant]
     Active Substance: MIDODRINE HYDROCHLORIDE
     Route: 065
     Dates: start: 20230209
  21. ONDANSETRON HYDROCHLORIDE [Concomitant]
     Active Substance: ONDANSETRON HYDROCHLORIDE
     Route: 065
     Dates: start: 20190715
  22. PRAMIPEXOLE DIHYDROCHLORIDE [Concomitant]
     Active Substance: PRAMIPEXOLE DIHYDROCHLORIDE
     Route: 065
     Dates: start: 20230516
  23. PREGABALIN [Concomitant]
     Active Substance: PREGABALIN
     Route: 065
     Dates: start: 20230421
  24. PROPRANOLOL HYDROCHLORIDE [Concomitant]
     Active Substance: PROPRANOLOL HYDROCHLORIDE
     Route: 065
     Dates: start: 20230428
  25. MONTELUKAST [Concomitant]
     Active Substance: MONTELUKAST SODIUM
     Route: 065
     Dates: start: 20240117
  26. METHOTREXATE [Concomitant]
     Active Substance: METHOTREXATE
     Route: 065
     Dates: start: 20240311
  27. DESONIDE [Concomitant]
     Active Substance: DESONIDE
     Dosage: 0.05 PERCENT
     Route: 065
     Dates: start: 20231201
  28. EPIPEN [Concomitant]
     Active Substance: EPINEPHRINE
     Dosage: 0.3 MILLIGRAM
     Route: 065
     Dates: start: 20231101
  29. FLUNISOLIDE [Concomitant]
     Active Substance: FLUNISOLIDE
     Dosage: 0.025 PERCENT
     Route: 065
  30. OZEMPIC [Concomitant]
     Active Substance: SEMAGLUTIDE
     Route: 065
     Dates: start: 20230601
  31. ONDANSETRON [Concomitant]
     Active Substance: ONDANSETRON
     Route: 065
     Dates: start: 20210527
  32. ADAPALENE [Concomitant]
     Active Substance: ADAPALENE
     Dosage: 0.3 PERCENT
     Route: 065
     Dates: start: 20210903
  33. BACLOFEN [Concomitant]
     Active Substance: BACLOFEN
     Route: 065
     Dates: start: 20220411
  34. FLUDROCORTISONE [Concomitant]
     Active Substance: FLUDROCORTISONE
     Dosage: 0.1 MI
     Route: 065
     Dates: start: 20220919
  35. PROPRANOLOL [Concomitant]
     Active Substance: PROPRANOLOL HYDROCHLORIDE
     Route: 065
     Dates: start: 20221123
  36. XOLAIR [Concomitant]
     Active Substance: OMALIZUMAB
     Dosage: 150 MILLIGRAM PER MILLILITRE
     Route: 065
     Dates: start: 20231201
  37. HYDROXYCHLOROQUINE [Concomitant]
     Active Substance: HYDROXYCHLOROQUINE
     Route: 065
     Dates: start: 20240103
  38. AMJEVITA [Concomitant]
     Active Substance: ADALIMUMAB-ATTO
     Route: 065
     Dates: start: 20240603
  39. CANNABIS SATIVA SUBSP. INDICA TOP [Concomitant]
     Active Substance: CANNABIS SATIVA SUBSP. INDICA TOP
     Route: 065
     Dates: start: 20240701
  40. TUMS EX [Concomitant]
     Active Substance: CALCIUM CARBONATE
     Route: 065
     Dates: start: 20240806
  41. SILDENAFIL [Concomitant]
     Active Substance: SILDENAFIL
     Indication: Dysmenorrhoea
     Route: 065
     Dates: start: 20240109
  42. NALTREXONE [Concomitant]
     Active Substance: NALTREXONE
     Indication: Brain fog
     Route: 065
     Dates: start: 20230201
  43. HERBALS\TETRAHYDROCANNABINOL UNSPECIFIED [Concomitant]
     Active Substance: HERBALS\TETRAHYDROCANNABINOL UNSPECIFIED
     Route: 065
  44. XYREM [Concomitant]
     Active Substance: SODIUM OXYBATE
     Indication: Narcolepsy
     Dosage: REGIMEN #1 ; 4.5 G B.I.D?3G AT BEDTIME AND 6G 2.5-4;?REGIMEN #2 HOURS LATE
     Route: 065
     Dates: start: 20230706

REACTIONS (2)
  - Vomiting [Unknown]
  - Nausea [Unknown]

NARRATIVE: CASE EVENT DATE: 20240806
